FAERS Safety Report 15710468 (Version 2)
Quarter: 2018Q4

REPORT INFORMATION
  Report Type: Spontaneous
  Country: GR (occurrence: GR)
  Receive Date: 20181211
  Receipt Date: 20181224
  Transmission Date: 20190205
  Serious: Yes (Other)
  Sender: FDA-Public Use
  Company Number: PHHY2018GR180276

PATIENT
  Age: 75 Year
  Sex: Male

DRUGS (6)
  1. CARVEDILOL. [Suspect]
     Active Substance: CARVEDILOL
     Indication: ATRIAL FIBRILLATION
     Dosage: 3.125 MG, BID
     Route: 065
  2. AMIODARONE [Suspect]
     Active Substance: AMIODARONE
     Indication: HYPERTENSION
     Dosage: UNK (HALF QD)
     Route: 065
  3. ATORVASTATIN [Suspect]
     Active Substance: ATORVASTATIN
     Indication: ATRIAL FIBRILLATION
     Dosage: 10 MG, QD
     Route: 065
  4. FUROSEMIDE. [Suspect]
     Active Substance: FUROSEMIDE
     Indication: DYSLIPIDAEMIA
     Dosage: 40 MG, 1X/DAY(HALF)
     Route: 065
  5. CARVEDILOL. [Suspect]
     Active Substance: CARVEDILOL
     Indication: HYPERTENSION
  6. FUROSEMIDE. [Suspect]
     Active Substance: FUROSEMIDE
     Dosage: 200 MG, (TOTAL, INTERMITTENT BOLUSES)
     Route: 040

REACTIONS (10)
  - Drug ineffective [Unknown]
  - Pallor [Unknown]
  - Cardiac failure chronic [Unknown]
  - Blood pressure decreased [Unknown]
  - Tachypnoea [Unknown]
  - Peripheral coldness [Unknown]
  - Oedema [Unknown]
  - Jugular vein distension [Unknown]
  - Hyperhidrosis [Unknown]
  - Rales [Unknown]
